FAERS Safety Report 6583642-7 (Version None)
Quarter: 2010Q1

REPORT INFORMATION
  Report Type: 
  Country: None (occurrence: None)
  Receive Date: 20100216
  Receipt Date: 20100209
  Transmission Date: 20100710
  Serious: Yes (Hospitalization)
  Sender: FDA-Public Use
  Company Number: FR-ABBOTT-10P-056-0625331-00

PATIENT
  Age: 29 Month
  Sex: Male

DRUGS (2)
  1. MICROPAKINE LP [Suspect]
     Indication: EPILEPSY
     Dosage: PRO-LONGED-RELEASE GRANULES
     Route: 048
     Dates: start: 20091001, end: 20091222
  2. AUGMENTIN PAEDIATRIC [Concomitant]
     Indication: DRUG USE FOR UNKNOWN INDICATION
     Dates: start: 20091221, end: 20091229

REACTIONS (2)
  - CYTOLYTIC HEPATITIS [None]
  - HEPATOCELLULAR INJURY [None]
